FAERS Safety Report 7164703-0 (Version None)
Quarter: 2010Q4

REPORT INFORMATION
  Report Type: 
  Country: None (occurrence: None)
  Receive Date: 20101215
  Receipt Date: 20101207
  Transmission Date: 20110411
  Serious: Yes (Death, Hospitalization, Other)
  Sender: FDA-Public Use
  Company Number: CA-ABBOTT-10P-028-0686349-00

PATIENT
  Sex: Female
  Weight: 105 kg

DRUGS (5)
  1. HUMIRA [Suspect]
     Indication: RHEUMATOID ARTHRITIS
     Route: 058
     Dates: start: 20100702
  2. IMURAN [Suspect]
     Indication: PRODUCT USED FOR UNKNOWN INDICATION
  3. PREDNISONE [Suspect]
     Indication: PRODUCT USED FOR UNKNOWN INDICATION
  4. FOSAVANCE [Suspect]
     Indication: PRODUCT USED FOR UNKNOWN INDICATION
  5. EVISTA [Suspect]
     Indication: PRODUCT USED FOR UNKNOWN INDICATION

REACTIONS (8)
  - BREAST CANCER [None]
  - CELLULITIS [None]
  - COGNITIVE DISORDER [None]
  - DIFFUSE LARGE B-CELL LYMPHOMA [None]
  - LOCALISED INFECTION [None]
  - NEUTROPENIA [None]
  - PSEUDOMONAL SEPSIS [None]
  - RHEUMATOID ARTHRITIS [None]
